FAERS Safety Report 14977940 (Version 2)
Quarter: 2018Q2

REPORT INFORMATION
  Report Type: Spontaneous
  Country: US (occurrence: US)
  Receive Date: 20180606
  Receipt Date: 20180627
  Transmission Date: 20180711
  Serious: No
  Sender: FDA-Public Use
  Company Number: US-PFIZER INC-2018228998

PATIENT
  Sex: Female

DRUGS (1)
  1. METHOTREXATE SODIUM. [Suspect]
     Active Substance: METHOTREXATE SODIUM
     Indication: RHEUMATOID ARTHRITIS
     Dosage: 0.4 ML, WEEKLY(INJECT 10MG (0.4ML) ONCE A WEEK)

REACTIONS (3)
  - Drug effect incomplete [Not Recovered/Not Resolved]
  - Increased appetite [Unknown]
  - Weight decreased [Unknown]
